FAERS Safety Report 4302400-7 (Version None)
Quarter: 2004Q1

REPORT INFORMATION
  Report Type: 
  Country: None (occurrence: None)
  Receive Date: 20040223
  Receipt Date: 20040223
  Transmission Date: 20041129
  Serious: Yes (Other)
  Sender: FDA-Public Use
  Company Number: None

PATIENT
  Sex: Female
  Weight: 61.2356 kg

DRUGS (2)
  1. BACTRIM [Suspect]
     Indication: SPINAL DISORDER
     Dosage: 160 MG TMP Q12 IV
     Route: 042
     Dates: start: 20040201, end: 20040206
  2. ROCEPHIN [Suspect]
     Indication: SPINAL DISORDER
     Dosage: 1G QD IV
     Route: 042
     Dates: start: 20040201, end: 20040206

REACTIONS (2)
  - PRURITUS [None]
  - SWELLING FACE [None]
